FAERS Safety Report 8222117-6 (Version None)
Quarter: 2012Q1

REPORT INFORMATION
  Report Type: 
  Country: None (occurrence: None)
  Receive Date: 20120320
  Receipt Date: 20120316
  Transmission Date: 20120608
  Serious: Yes (Hospitalization, Other)
  Sender: FDA-Public Use
  Company Number: US-MERCK-01081321

PATIENT
  Age: 62 Year
  Sex: Female
  Weight: 43 kg

DRUGS (10)
  1. FOSAMAX [Suspect]
     Route: 048
     Dates: end: 20090901
  2. FOSAMAX [Suspect]
     Route: 048
     Dates: start: 20060101
  3. VITAMIN D (UNSPECIFIED) [Concomitant]
     Indication: OSTEOPOROSIS
     Route: 065
  4. PREVACID [Concomitant]
     Indication: DYSPEPSIA
     Route: 065
  5. BAYCOL [Concomitant]
     Indication: HYPERCHOLESTEROLAEMIA
     Route: 065
  6. BONIVA [Suspect]
     Indication: OSTEOPOROSIS
     Route: 065
     Dates: start: 20060601, end: 20090501
  7. CALCIUM (UNSPECIFIED) [Concomitant]
     Indication: OSTEOPOROSIS
     Route: 065
  8. LEVOXYL [Concomitant]
     Indication: HYPOTHYROIDISM
     Route: 065
  9. FOSAMAX [Suspect]
     Indication: OSTEOPOROSIS
     Route: 048
     Dates: start: 19990401, end: 20040301
  10. FOSAMAX [Suspect]
     Route: 048
     Dates: end: 19991101

REACTIONS (56)
  - OSTEONECROSIS OF JAW [None]
  - SQUAMOUS CELL CARCINOMA [None]
  - GASTROOESOPHAGEAL REFLUX DISEASE [None]
  - EPIGASTRIC DISCOMFORT [None]
  - OSTEOPENIA [None]
  - RHEUMATOID ARTHRITIS [None]
  - POSTMENOPAUSAL HAEMORRHAGE [None]
  - IMPAIRED HEALING [None]
  - BACK PAIN [None]
  - CHRONIC OBSTRUCTIVE PULMONARY DISEASE [None]
  - LUNG NEOPLASM [None]
  - LUMBAR SPINAL STENOSIS [None]
  - FRACTURE [None]
  - BRONCHIOLOALVEOLAR CARCINOMA [None]
  - CONTUSION [None]
  - FOOD ALLERGY [None]
  - ARTHRITIS [None]
  - EROSIVE OESOPHAGITIS [None]
  - ABDOMINAL HERNIA [None]
  - DYSPNOEA [None]
  - OSTEOARTHRITIS [None]
  - INAPPROPRIATE SCHEDULE OF DRUG ADMINISTRATION [None]
  - TOOTH INFECTION [None]
  - SCOLIOSIS [None]
  - FUNCTIONAL GASTROINTESTINAL DISORDER [None]
  - CHEST PAIN [None]
  - CORONARY ARTERY DISEASE [None]
  - INTERVERTEBRAL DISC DEGENERATION [None]
  - HYPOAESTHESIA [None]
  - EPICONDYLITIS [None]
  - BURSITIS [None]
  - PERIODONTAL DISEASE [None]
  - BRONCHITIS CHRONIC [None]
  - ANAPHYLACTIC REACTION [None]
  - OSTEOMYELITIS [None]
  - DIVERTICULUM [None]
  - DENTAL CARIES [None]
  - CUBITAL TUNNEL SYNDROME [None]
  - ARTHRALGIA [None]
  - WEIGHT DECREASED [None]
  - CARPAL TUNNEL SYNDROME [None]
  - TOOTHACHE [None]
  - GASTROINTESTINAL DISORDER [None]
  - GASTRITIS [None]
  - CYSTITIS [None]
  - ACNE [None]
  - BARRETT'S OESOPHAGUS [None]
  - TOOTH DISORDER [None]
  - TOOTH ABSCESS [None]
  - HAEMORRHOIDS [None]
  - FALL [None]
  - ABSCESS [None]
  - UTERINE POLYP [None]
  - MACROCYTOSIS [None]
  - RHINITIS [None]
  - HIATUS HERNIA [None]
